FAERS Safety Report 8530914 (Version 4)
Quarter: 2013Q2

REPORT INFORMATION
  Report Type: Spontaneous
  Country: US (occurrence: US)
  Receive Date: 20120426
  Receipt Date: 20130514
  Transmission Date: 20140414
  Serious: Yes (Hospitalization)
  Sender: FDA-Public Use
  Company Number: US-PFIZER INC-2012102478

PATIENT
  Age: 67 Year
  Sex: Female
  Weight: 112 kg

DRUGS (7)
  1. LYRICA [Suspect]
     Indication: FIBROMYALGIA
     Dosage: 75 MG, 2X/DAY
     Route: 048
     Dates: start: 20120418
  2. LYRICA [Suspect]
     Indication: BACK PAIN
  3. LYRICA [Suspect]
     Indication: MUSCULOSKELETAL PAIN
  4. LYRICA [Suspect]
     Indication: ARTHRALGIA
  5. LYRICA [Suspect]
     Indication: PAIN IN EXTREMITY
  6. MOBIC [Concomitant]
     Indication: OSTEOARTHRITIS
     Dosage: 7.5 (2), 1X/DAY
     Dates: start: 201207
  7. HYZAAR [Concomitant]
     Indication: HYPERTENSION
     Dosage: 100/25, 1X/DAY
     Dates: start: 201205

REACTIONS (4)
  - Cerebrovascular accident [Recovered/Resolved]
  - Somnolence [Not Recovered/Not Resolved]
  - Malaise [Not Recovered/Not Resolved]
  - Fatigue [Not Recovered/Not Resolved]
